FAERS Safety Report 24065400 (Version 2)
Quarter: 2024Q3

REPORT INFORMATION
  Report Type: Spontaneous
  Country: CN (occurrence: CN)
  Receive Date: 20240709
  Receipt Date: 20240904
  Transmission Date: 20241017
  Serious: Yes (Other)
  Sender: BIO-THERA SOLUTIONS
  Company Number: CN-Bio-Thera Solutions, Ltd.-2158950

PATIENT
  Age: 53 Year
  Sex: Male

DRUGS (1)
  1. AVZIVI [Suspect]
     Active Substance: BEVACIZUMAB-TNJN
     Indication: Hepatocellular carcinoma

REACTIONS (1)
  - Toxic epidermal necrolysis [Unknown]
